FAERS Safety Report 22525845 (Version 1)
Quarter: 2023Q2

REPORT INFORMATION
  Report Type: Spontaneous
  Country: KR (occurrence: KR)
  Receive Date: 20230606
  Receipt Date: 20230606
  Transmission Date: 20230721
  Serious: Yes (Hospitalization)
  Sender: FDA-Public Use
  Company Number: KR-ORGANON-O2305KOR003312

PATIENT
  Age: 55 Year
  Sex: Female
  Weight: 57.3 kg

DRUGS (7)
  1. COZAAR [Suspect]
     Active Substance: LOSARTAN POTASSIUM
     Indication: Essential hypertension
     Dosage: UNK; FORMULATION: FILM-COATED TABLETS
     Route: 048
     Dates: start: 20190327
  2. TOFACITINIB CITRATE [Suspect]
     Active Substance: TOFACITINIB CITRATE
     Indication: Rheumatoid arthritis
     Dosage: 5 MILLIGRAM, 0.5 DAY
     Route: 048
     Dates: start: 20191002
  3. METHOTREXATE [Concomitant]
     Active Substance: METHOTREXATE
     Indication: Rheumatoid arthritis
     Dosage: UNK
     Route: 048
     Dates: start: 20190327
  4. FOLIC ACID [Concomitant]
     Active Substance: FOLIC ACID
     Dosage: UNK
     Route: 048
     Dates: start: 20190327
  5. CELECOXIB [Concomitant]
     Active Substance: CELECOXIB
     Indication: Rheumatoid arthritis
     Dosage: UNK; FORMULATION: HARD CAPSULES, POWDER
     Route: 048
     Dates: start: 20190529
  6. TEPRENONE [Concomitant]
     Active Substance: TEPRENONE
     Dosage: UNK; FORMULATION: HARD CAPSULES, GRANULES
     Route: 048
     Dates: start: 20190327
  7. PREDNISOLONE [Concomitant]
     Active Substance: PREDNISOLONE
     Indication: Rheumatoid arthritis
     Dosage: UNK: FORMULATION: UNCOATED TABLET
     Route: 048
     Dates: start: 20190327

REACTIONS (1)
  - Inflammation [Recovered/Resolved]

NARRATIVE: CASE EVENT DATE: 20191104
